FAERS Safety Report 14980519 (Version 3)
Quarter: 2018Q2

REPORT INFORMATION
  Report Type: Spontaneous
  Country: US (occurrence: US)
  Receive Date: 20180606
  Receipt Date: 20180620
  Transmission Date: 20180711
  Serious: No
  Sender: FDA-Public Use
  Company Number: US-ACTELION-A-US2018-172613

PATIENT
  Age: 80 Year
  Sex: Female
  Weight: 46.26 kg

DRUGS (5)
  1. WARFARIN [Concomitant]
     Active Substance: WARFARIN
  2. UPTRAVI [Suspect]
     Active Substance: SELEXIPAG
     Indication: PULMONARY ARTERIAL HYPERTENSION
     Dosage: 1000 MCG, BID
     Route: 048
     Dates: start: 201804
  3. DILTIAZEM. [Concomitant]
     Active Substance: DILTIAZEM
  4. SILDENAFIL. [Suspect]
     Active Substance: SILDENAFIL
     Indication: PRODUCT USED FOR UNKNOWN INDICATION
     Dosage: 20 MG, TID
     Route: 065
  5. TYVASO [Suspect]
     Active Substance: TREPROSTINIL
     Indication: PULMONARY HYPERTENSION
     Dosage: 18-54 MCG QID
     Route: 055
     Dates: start: 20131112

REACTIONS (9)
  - Diarrhoea [Recovering/Resolving]
  - Decreased appetite [Unknown]
  - Feeling abnormal [Unknown]
  - Haemorrhoids [Unknown]
  - Somnolence [Unknown]
  - Cystitis [Unknown]
  - Malaise [Recovered/Resolved]
  - Fatigue [Unknown]
  - Overdose [Unknown]

NARRATIVE: CASE EVENT DATE: 201804
